FAERS Safety Report 12339341 (Version 1)
Quarter: 2016Q2

REPORT INFORMATION
  Report Type: Spontaneous
  Country: FR (occurrence: FR)
  Receive Date: 20160505
  Receipt Date: 20160505
  Transmission Date: 20160815
  Serious: Yes (Life-Threatening, Hospitalization, Other)
  Sender: FDA-Public Use
  Company Number: FR-ASTRAZENECA-2016SE47374

PATIENT
  Age: 27558 Day
  Sex: Male

DRUGS (12)
  1. TEMESTA [Concomitant]
     Active Substance: LORAZEPAM
     Dosage: 1 MG IN THE MORNING AND IN THE EVENING
  2. LEVOTHYROX [Concomitant]
     Active Substance: LEVOTHYROXINE
  3. LAMOTRIGINE. [Concomitant]
     Active Substance: LAMOTRIGINE
     Dosage: 100 MG IN THE MORNING AND IN THE EVENING
  4. XEROQUEL [Suspect]
     Active Substance: QUETIAPINE FUMARATE
     Indication: BIPOLAR DISORDER
     Route: 048
     Dates: end: 20151109
  5. NOVORAPID [Concomitant]
     Active Substance: INSULIN ASPART
  6. NOVOMIX 30 [Concomitant]
     Active Substance: INSULIN ASPART
     Dosage: 20 IU IN THE MORNING, 17 IU IN THE EVENING.
  7. LYRICA [Suspect]
     Active Substance: PREGABALIN
     Indication: BIPOLAR DISORDER
     Route: 048
     Dates: end: 20151109
  8. AVLOCARDYL [Concomitant]
     Active Substance: PROPRANOLOL HYDROCHLORIDE
  9. MOVICOL [Concomitant]
     Active Substance: POLYETHYLENE GLYCOL 3350\POTASSIUM CHLORIDE\SODIUM BICARBONATE\SODIUM CHLORIDE
  10. PRAVASTATIN [Concomitant]
     Active Substance: PRAVASTATIN\PRAVASTATIN SODIUM
  11. PLAVIX [Concomitant]
     Active Substance: CLOPIDOGREL BISULFATE
  12. DAFALGAN [Concomitant]
     Active Substance: ACETAMINOPHEN
     Indication: PAIN

REACTIONS (9)
  - Tremor [Recovered/Resolved]
  - Hypertension [Recovered/Resolved]
  - Agitation [Recovered/Resolved]
  - Aphasia [Recovering/Resolving]
  - Disorientation [Recovering/Resolving]
  - Diabetic ketoacidosis [Unknown]
  - Confusional state [Recovered/Resolved]
  - Neutropenia [Recovered/Resolved]
  - Therapy cessation [Unknown]

NARRATIVE: CASE EVENT DATE: 20151108
